FAERS Safety Report 21595033 (Version 2)
Quarter: 2023Q1

REPORT INFORMATION
  Report Type: Report from Study
  Country: ES (occurrence: ES)
  Receive Date: 20221115
  Receipt Date: 20230312
  Transmission Date: 20230418
  Serious: Yes (Hospitalization)
  Sender: FDA-Public Use
  Company Number: ES-ABBVIE-4198629

PATIENT
  Age: 75 Year
  Sex: Male
  Weight: 60 kg

DRUGS (2)
  1. CARBIDOPA\LEVODOPA [Suspect]
     Active Substance: CARBIDOPA\LEVODOPA
     Indication: Parkinson^s disease
     Route: 050
     Dates: start: 20201222, end: 2023
  2. CARBIDOPA\LEVODOPA [Suspect]
     Active Substance: CARBIDOPA\LEVODOPA

REACTIONS (8)
  - Pneumonia [Not Recovered/Not Resolved]
  - Pulmonary oedema [Unknown]
  - Bronchitis [Not Recovered/Not Resolved]
  - Device dislocation [Unknown]
  - Device issue [Unknown]
  - Drowning [Unknown]
  - Cough [Unknown]
  - Lung disorder [Unknown]

NARRATIVE: CASE EVENT DATE: 20220928
